FAERS Safety Report 24991363 (Version 1)
Quarter: 2025Q1

REPORT INFORMATION
  Report Type: Spontaneous
  Country: RU (occurrence: RU)
  Receive Date: 20250220
  Receipt Date: 20250220
  Transmission Date: 20250409
  Serious: Yes (Hospitalization, Other)
  Sender: ABBVIE
  Company Number: RU-ABBVIE-6135514

PATIENT
  Age: 7 Year
  Sex: Female
  Weight: 19 kg

DRUGS (3)
  1. HUMIRA [Suspect]
     Active Substance: ADALIMUMAB
     Indication: Product used for unknown indication
     Route: 058
     Dates: start: 20240726, end: 20250109
  2. METHOTREXATE [Suspect]
     Active Substance: METHOTREXATE
     Indication: Product used for unknown indication
     Route: 058
     Dates: start: 20241029
  3. METHOTREXATE [Suspect]
     Active Substance: METHOTREXATE
     Indication: Product used for unknown indication
     Route: 058
     Dates: start: 20240726, end: 20241029

REACTIONS (17)
  - Oedema peripheral [Recovered/Resolved]
  - Hypersensitivity [Recovered/Resolved]
  - Asthenia [Unknown]
  - Injection site oedema [Unknown]
  - Injection site extravasation [Unknown]
  - Hyperaemia [Recovered/Resolved]
  - Asthenia [Recovered/Resolved]
  - Aspartate aminotransferase increased [Recovered/Resolved]
  - Nausea [Recovered/Resolved]
  - Injection site erythema [Unknown]
  - Hyperaemia [Recovered/Resolved]
  - Product administered at inappropriate site [Recovered/Resolved]
  - Nausea [Unknown]
  - Localised oedema [Recovered/Resolved]
  - Alanine aminotransferase increased [Recovered/Resolved]
  - Injection site extravasation [Recovered/Resolved]
  - Injection site oedema [Recovered/Resolved]

NARRATIVE: CASE EVENT DATE: 20240101
